FAERS Safety Report 25994075 (Version 1)
Quarter: 2025Q4

REPORT INFORMATION
  Report Type: Spontaneous
  Country: US (occurrence: US)
  Receive Date: 20251104
  Receipt Date: 20251104
  Transmission Date: 20260117
  Serious: Yes (Hospitalization, Other)
  Sender: ANI
  Company Number: US-ANIPHARMA-031034

PATIENT
  Age: 63 Year
  Sex: Female
  Weight: 90.72 kg

DRUGS (7)
  1. VANCOMYCIN HYDROCHLORIDE [Suspect]
     Active Substance: VANCOMYCIN HYDROCHLORIDE
     Indication: Product used for unknown indication
  2. KORLYM [Concomitant]
     Active Substance: MIFEPRISTONE
     Indication: Drug therapy
  3. OZEMPIC [Concomitant]
     Active Substance: SEMAGLUTIDE
     Indication: Increased appetite
  4. RECORLEV [Concomitant]
     Active Substance: LEVOKETOCONAZOLE
     Indication: Cushing^s syndrome
     Route: 048
     Dates: start: 20250918, end: 20250919
  5. RECORLEV [Concomitant]
     Active Substance: LEVOKETOCONAZOLE
     Indication: Cushing^s syndrome
     Route: 048
     Dates: start: 2025
  6. RECORLEV [Concomitant]
     Active Substance: LEVOKETOCONAZOLE
     Indication: Cushing^s syndrome
     Route: 048
     Dates: start: 20250920, end: 2025
  7. RECORLEV [Concomitant]
     Active Substance: LEVOKETOCONAZOLE
     Indication: Cushing^s syndrome
     Route: 048
     Dates: start: 20250101

REACTIONS (15)
  - Kidney infection [Unknown]
  - Sepsis [Unknown]
  - Fungal infection [Not Recovered/Not Resolved]
  - Cystitis [Unknown]
  - Pyrexia [Unknown]
  - Staphylococcal infection [Unknown]
  - Bacteraemia [Unknown]
  - Somnolence [Unknown]
  - Asthenia [Unknown]
  - Dysphemia [Unknown]
  - Nausea [Unknown]
  - Fatigue [Unknown]
  - Diarrhoea [Unknown]
  - Abdominal discomfort [Unknown]
  - Vomiting [Unknown]
